FAERS Safety Report 5698100-1 (Version None)
Quarter: 2008Q2

REPORT INFORMATION
  Report Type: 
  Country: None (occurrence: None)
  Receive Date: 20080408
  Receipt Date: 20080327
  Transmission Date: 20081010
  Serious: Yes (Other)
  Sender: FDA-Public Use
  Company Number: US-PFIZER INC-2008028058

PATIENT
  Sex: Female
  Weight: 59 kg

DRUGS (10)
  1. LYRICA [Suspect]
     Indication: FIBROMYALGIA
     Dates: start: 20070101, end: 20080303
  2. NEURONTIN [Suspect]
     Indication: FIBROMYALGIA
  3. COREG [Concomitant]
  4. AMBIEN [Concomitant]
  5. CRESTOR [Concomitant]
  6. ALLEGRA [Concomitant]
  7. LORTAB [Concomitant]
  8. CLIMARA [Concomitant]
     Route: 061
  9. TYLENOL (CAPLET) [Concomitant]
  10. VITAMIN B-12 [Concomitant]

REACTIONS (6)
  - ACTIVITIES OF DAILY LIVING IMPAIRED [None]
  - COGNITIVE DISORDER [None]
  - DISTURBANCE IN ATTENTION [None]
  - IMPAIRED DRIVING ABILITY [None]
  - MEMORY IMPAIRMENT [None]
  - SOMNOLENCE [None]
